FAERS Safety Report 17075956 (Version 2)
Quarter: 2020Q1

REPORT INFORMATION
  Report Type: Spontaneous
  Country: US (occurrence: US)
  Receive Date: 20191126
  Receipt Date: 20200324
  Transmission Date: 20200409
  Serious: Yes (Other)
  Sender: FDA-Public Use
  Company Number: US-GILEAD-2019-0439500

PATIENT
  Age: 63 Year
  Sex: Male

DRUGS (36)
  1. VIREAD [Suspect]
     Active Substance: TENOFOVIR DISOPROXIL FUMARATE
     Indication: HIV INFECTION
     Dosage: 300 MG, QD
     Route: 048
     Dates: start: 20020730, end: 20050901
  2. SUSTIVA [Concomitant]
     Active Substance: EFAVIRENZ
  3. FORTOVASE [SAQUINAVIR] [Concomitant]
  4. VIRAMUNE [Concomitant]
     Active Substance: NEVIRAPINE
  5. CALCIUM [Concomitant]
     Active Substance: CALCIUM
  6. PREZISTA [Concomitant]
     Active Substance: DARUNAVIR ETHANOLATE
  7. LEVITRA [Concomitant]
     Active Substance: VARDENAFIL HYDROCHLORIDE
  8. VIREAD [Suspect]
     Active Substance: TENOFOVIR DISOPROXIL FUMARATE
     Dosage: UNK
     Route: 048
     Dates: start: 200408, end: 200509
  9. ACYCLOVIR [ACICLOVIR] [Concomitant]
     Active Substance: ACYCLOVIR
  10. EFAVIRENZ + EMTRICITABINE + TENOFOVIR DISOPROXIL FUMARATE [Concomitant]
     Active Substance: EFAVIRENZ\EMTRICITABINE\TENOFOVIR DISOPROXIL FUMARATE
  11. ISENTRESS [Concomitant]
     Active Substance: RALTEGRAVIR POTASSIUM
  12. EPIVIR [Concomitant]
     Active Substance: LAMIVUDINE
  13. FAMOTIDINE. [Concomitant]
     Active Substance: FAMOTIDINE
  14. RALTEGRAVIR. [Concomitant]
     Active Substance: RALTEGRAVIR
  15. COLACE [Concomitant]
     Active Substance: DOCUSATE SODIUM
  16. INVIRASE [Concomitant]
     Active Substance: SAQUINAVIR MESYLATE
  17. NORVIR [Concomitant]
     Active Substance: RITONAVIR
  18. VICODIN [Concomitant]
     Active Substance: ACETAMINOPHEN\HYDROCODONE BITARTRATE
  19. ZOLPIDEM [Concomitant]
     Active Substance: ZOLPIDEM TARTRATE
  20. LORAZEPAM. [Concomitant]
     Active Substance: LORAZEPAM
  21. SEPTRA [Concomitant]
     Active Substance: SULFAMETHOXAZOLE\TRIMETHOPRIM
  22. LISINOPRIL. [Concomitant]
     Active Substance: LISINOPRIL
  23. RITONAVIR. [Concomitant]
     Active Substance: RITONAVIR
  24. LAMIVUDINE. [Concomitant]
     Active Substance: LAMIVUDINE
  25. CIALIS [Concomitant]
     Active Substance: TADALAFIL
  26. ASACOL [Concomitant]
     Active Substance: MESALAMINE
  27. METOCLOPRAMIDE. [Concomitant]
     Active Substance: METOCLOPRAMIDE
  28. VIREAD [Suspect]
     Active Substance: TENOFOVIR DISOPROXIL FUMARATE
     Dosage: UNK
     Route: 048
  29. TRUVADA [Suspect]
     Active Substance: EMTRICITABINE\TENOFOVIR DISOPROXIL FUMARATE
     Indication: HIV INFECTION
     Dosage: 1 DF QD
     Route: 048
     Dates: start: 20090914, end: 20100126
  30. TRUVADA [Suspect]
     Active Substance: EMTRICITABINE\TENOFOVIR DISOPROXIL FUMARATE
     Dosage: UNK
     Route: 048
     Dates: start: 20100126
  31. BUPROPION. [Concomitant]
     Active Substance: BUPROPION
  32. KALETRA [Concomitant]
     Active Substance: LOPINAVIR\RITONAVIR
  33. VIREAD [Suspect]
     Active Substance: TENOFOVIR DISOPROXIL FUMARATE
     Dosage: 300 MG, QOD
     Route: 048
     Dates: start: 20040801
  34. OMEPRAZOLE. [Concomitant]
     Active Substance: OMEPRAZOLE
  35. VITAMINS NOS [Concomitant]
     Active Substance: VITAMINS
  36. PREDNISONE. [Concomitant]
     Active Substance: PREDNISONE

REACTIONS (17)
  - Osteoporosis [Unknown]
  - Osteonecrosis [Unknown]
  - Osteopenia [Unknown]
  - Hand fracture [Unknown]
  - Foot fracture [Unknown]
  - Bone density decreased [Unknown]
  - Economic problem [Unknown]
  - Chronic kidney disease [Unknown]
  - Renal failure [Unknown]
  - Emotional distress [Unknown]
  - Foot fracture [Unknown]
  - Rib fracture [Unknown]
  - Hip fracture [Unknown]
  - Anhedonia [Unknown]
  - Fanconi syndrome acquired [Unknown]
  - Pain [Unknown]
  - Anxiety [Unknown]

NARRATIVE: CASE EVENT DATE: 20031224
